FAERS Safety Report 5536088-4 (Version None)
Quarter: 2007Q4

REPORT INFORMATION
  Report Type: 
  Country: None (occurrence: None)
  Receive Date: 20071204
  Receipt Date: 20071121
  Transmission Date: 20080405
  Serious: Yes (Other)
  Sender: FDA-Public Use
  Company Number: 2007S1012263

PATIENT
  Age: 39 Year
  Sex: Female

DRUGS (7)
  1. FENTANYL TRANSDERMAL SYSTEM [Suspect]
     Indication: FIBROMYALGIA
     Dosage: 25 UG/HR; EVERY 3 DAYS; TRANSDERMAL; 25 UG/HR; X1; TRANSDERMAL
     Route: 062
     Dates: start: 20071023, end: 20071106
  2. FENTANYL TRANSDERMAL SYSTEM [Suspect]
     Indication: PAIN
     Dosage: 25 UG/HR; EVERY 3 DAYS; TRANSDERMAL; 25 UG/HR; X1; TRANSDERMAL
     Route: 062
     Dates: start: 20071023, end: 20071106
  3. FENTANYL TRANSDERMAL SYSTEM [Suspect]
     Indication: FIBROMYALGIA
     Dosage: 25 UG/HR; EVERY 3 DAYS; TRANSDERMAL; 25 UG/HR; X1; TRANSDERMAL
     Route: 062
     Dates: start: 20071120, end: 20071120
  4. FENTANYL TRANSDERMAL SYSTEM [Suspect]
     Indication: PAIN
     Dosage: 25 UG/HR; EVERY 3 DAYS; TRANSDERMAL; 25 UG/HR; X1; TRANSDERMAL
     Route: 062
     Dates: start: 20071120, end: 20071120
  5. SOMA [Concomitant]
  6. METOPROLOL TARTRATE [Concomitant]
  7. LORTAB [Concomitant]

REACTIONS (2)
  - BLOOD PRESSURE INCREASED [None]
  - HYPERSENSITIVITY [None]
